FAERS Safety Report 12725246 (Version 2)
Quarter: 2016Q3

REPORT INFORMATION
  Report Type: Spontaneous
  Country: GB (occurrence: GB)
  Receive Date: 20160908
  Receipt Date: 20160923
  Transmission Date: 20161109
  Serious: Yes (Hospitalization)
  Sender: FDA-Public Use
  Company Number: GB-PFIZER INC-2016414749

PATIENT
  Age: 46 Year
  Sex: Female

DRUGS (5)
  1. FLUCLOXACILLIN [Concomitant]
     Active Substance: FLUCLOXACILLIN
     Dosage: MULTIPLE COURSES
  2. METFORMIN [Concomitant]
     Active Substance: METFORMIN HYDROCHLORIDE
     Dosage: 1 G MORNING, 500 MG TEATIME
  3. ATORVASTATIN CALCIUM. [Suspect]
     Active Substance: ATORVASTATIN CALCIUM
     Dosage: 40 MG, 1X/DAY (AT NIGHT, INTRODUCED IN LAST COUPLE OF MONTHS)
  4. AMITRIPTYLINE [Suspect]
     Active Substance: AMITRIPTYLINE
     Dosage: 10 MG, 1X/DAY (AT NIGHT, INTRODUCED IN LAST COUPLE OF MONTHS)
  5. GLICLAZIDE [Concomitant]
     Active Substance: GLICLAZIDE
     Dosage: 40 MG, 2X/DAY

REACTIONS (3)
  - Pemphigoid [Recovering/Resolving]
  - Pruritus [Unknown]
  - Abnormal loss of weight [Unknown]
